FAERS Safety Report 9656008 (Version 1)
Quarter: 2013Q4

REPORT INFORMATION
  Report Type: Spontaneous
  Country: IT (occurrence: IT)
  Receive Date: 20131030
  Receipt Date: 20131030
  Transmission Date: 20140711
  Serious: Yes (Other)
  Sender: FDA-Public Use
  Company Number: IT-ABBVIE-13P-083-1163021-00

PATIENT
  Age: 65 Year
  Sex: Male
  Weight: 61 kg

DRUGS (2)
  1. FENOFIBRATE [Suspect]
     Indication: HYPERTRIGLYCERIDAEMIA
     Route: 048
     Dates: start: 20130313, end: 20130325
  2. GAVISCON ADVANCE [Concomitant]
     Indication: DYSPEPSIA
     Dosage: FORM STRENGTH: 1000 MG/10 ML + 200 MG/ML
     Dates: start: 20090906, end: 20130919

REACTIONS (3)
  - Hepatitis [Recovered/Resolved]
  - Asthenia [Recovered/Resolved]
  - Hypertransaminasaemia [Recovered/Resolved]
